FAERS Safety Report 25452646 (Version 1)
Quarter: 2025Q2

REPORT INFORMATION
  Report Type: Spontaneous
  Country: FR (occurrence: FR)
  Receive Date: 20250618
  Receipt Date: 20250618
  Transmission Date: 20250717
  Serious: Yes (Hospitalization)
  Sender: MYLAN
  Company Number: FR-PFIZER INC-PV202500067606

PATIENT
  Age: 55 Year
  Sex: Male
  Weight: 87 kg

DRUGS (16)
  1. CANDESARTAN [Suspect]
     Active Substance: CANDESARTAN
     Indication: Hypertension
     Dosage: 8 MILLIGRAM, QD (8 MG, DAILY)
     Dates: end: 20250603
  2. CANDESARTAN [Suspect]
     Active Substance: CANDESARTAN
     Dosage: 8 MILLIGRAM, QD (8 MG, DAILY)
     Route: 065
     Dates: end: 20250603
  3. CANDESARTAN [Suspect]
     Active Substance: CANDESARTAN
     Dosage: 8 MILLIGRAM, QD (8 MG, DAILY)
     Route: 065
     Dates: end: 20250603
  4. CANDESARTAN [Suspect]
     Active Substance: CANDESARTAN
     Dosage: 8 MILLIGRAM, QD (8 MG, DAILY)
     Dates: end: 20250603
  5. SALAZOPYRINE [Suspect]
     Active Substance: SULFASALAZINE
     Indication: Rheumatoid arthritis
     Dosage: 1 DOSAGE FORM, QD (1 DF, DAILY)
     Dates: start: 20250504
  6. SALAZOPYRINE [Suspect]
     Active Substance: SULFASALAZINE
     Dosage: 1 DOSAGE FORM, QD (1 DF, DAILY)
     Dates: start: 20250504
  7. SALAZOPYRINE [Suspect]
     Active Substance: SULFASALAZINE
     Dosage: 1 DOSAGE FORM, QD (1 DF, DAILY)
     Route: 048
     Dates: start: 20250504
  8. SALAZOPYRINE [Suspect]
     Active Substance: SULFASALAZINE
     Dosage: 1 DOSAGE FORM, QD (1 DF, DAILY)
     Route: 048
     Dates: start: 20250504
  9. SALAZOPYRINE [Suspect]
     Active Substance: SULFASALAZINE
     Dosage: 2 DOSAGE FORM, QD (2 DF, DAILY)
     Dates: start: 20250511
  10. SALAZOPYRINE [Suspect]
     Active Substance: SULFASALAZINE
     Dosage: 2 DOSAGE FORM, QD (2 DF, DAILY)
     Dates: start: 20250511
  11. SALAZOPYRINE [Suspect]
     Active Substance: SULFASALAZINE
     Dosage: 2 DOSAGE FORM, QD (2 DF, DAILY)
     Route: 048
     Dates: start: 20250511
  12. SALAZOPYRINE [Suspect]
     Active Substance: SULFASALAZINE
     Dosage: 2 DOSAGE FORM, QD (2 DF, DAILY)
     Route: 048
     Dates: start: 20250511
  13. SALAZOPYRINE [Suspect]
     Active Substance: SULFASALAZINE
     Dosage: 3 DOSAGE FORM, QD (3 DF, DAILY)
     Dates: start: 20250518, end: 20250523
  14. SALAZOPYRINE [Suspect]
     Active Substance: SULFASALAZINE
     Dosage: 3 DOSAGE FORM, QD (3 DF, DAILY)
     Route: 065
     Dates: start: 20250518, end: 20250523
  15. SALAZOPYRINE [Suspect]
     Active Substance: SULFASALAZINE
     Dosage: 3 DOSAGE FORM, QD (3 DF, DAILY)
     Dates: start: 20250518, end: 20250523
  16. SALAZOPYRINE [Suspect]
     Active Substance: SULFASALAZINE
     Dosage: 3 DOSAGE FORM, QD (3 DF, DAILY)
     Route: 065
     Dates: start: 20250518, end: 20250523

REACTIONS (3)
  - Drug reaction with eosinophilia and systemic symptoms [Recovering/Resolving]
  - Dermatitis exfoliative generalised [Recovering/Resolving]
  - Cell death [Recovering/Resolving]

NARRATIVE: CASE EVENT DATE: 20250525
